FAERS Safety Report 18062699 (Version 2)
Quarter: 2020Q3

REPORT INFORMATION
  Report Type: Spontaneous
  Country: US (occurrence: US)
  Receive Date: 20200724
  Receipt Date: 20200831
  Transmission Date: 20201103
  Serious: Yes (Other)
  Sender: FDA-Public Use
  Company Number: US-PACIRA-202000298

PATIENT
  Sex: Female

DRUGS (3)
  1. NORMAL SALINE [Concomitant]
     Active Substance: SODIUM CHLORIDE
     Indication: EXPLORATIVE LAPAROTOMY
     Dosage: ADMIXED WITH 266 MG (20 ML) LIPOSOMAL BUPIVACAINE 0.25% BUPIVACAINE 150 MG, DILUTED TO 60 ML
  2. EXPAREL [Suspect]
     Active Substance: BUPIVACAINE
     Indication: EXPLORATIVE LAPAROTOMY
     Dosage: 266 MG (20ML) ADMIXED WITH 0.25% BUPIVACAINE 150 MG AND NORMAL SALINE DILUTED TO 60 ML
  3. 0.25% BUPIVACAINE [Suspect]
     Active Substance: BUPIVACAINE
     Indication: EXPLORATIVE LAPAROTOMY
     Dosage: 150 MG ADMIXED WITH 266 MG (2 0ML) LIPOSOMAL BUPIVACAINE AND NORMAL SALINE, DILUTED TO 60 ML

REACTIONS (3)
  - Postoperative wound complication [Unknown]
  - Adverse event [Unknown]
  - Post procedural complication [Unknown]
